FAERS Safety Report 15951467 (Version 1)
Quarter: 2019Q1

REPORT INFORMATION
  Report Type: Spontaneous
  Country: US (occurrence: US)
  Receive Date: 20190212
  Receipt Date: 20190212
  Transmission Date: 20190417
  Serious: No
  Sender: FDA-Public Use
  Company Number: US-BAYER-2019-029979

PATIENT
  Age: 61 Year
  Sex: Female
  Weight: 55.78 kg

DRUGS (3)
  1. MIRALAX [Suspect]
     Active Substance: POLYETHYLENE GLYCOL 3350
     Indication: IRRITABLE BOWEL SYNDROME
     Dosage: 17 G
     Dates: start: 2016
  2. BENEFIBER [DEXTRIN] [Concomitant]
     Dosage: 5 TABLESPOONS
  3. LINZESS [Concomitant]
     Active Substance: LINACLOTIDE
     Dosage: 290 MG

REACTIONS (1)
  - Product use in unapproved indication [None]

NARRATIVE: CASE EVENT DATE: 2016
